FAERS Safety Report 19862408 (Version 2)
Quarter: 2021Q4

REPORT INFORMATION
  Report Type: Report from Study
  Country: None (occurrence: US)
  Receive Date: 20210921
  Receipt Date: 20211001
  Transmission Date: 20220303
  Serious: Yes (Hospitalization, Other)
  Sender: FDA-Public Use
  Company Number: US-ABBVIE-21K-163-4083744-00

PATIENT
  Age: 74 Year
  Sex: Female
  Weight: 80.81 kg

DRUGS (6)
  1. HUMIRA [Suspect]
     Active Substance: ADALIMUMAB
     Indication: Rheumatoid arthritis
     Dosage: CITRATE FREE
     Route: 058
     Dates: start: 2009, end: 202108
  2. HUMIRA [Suspect]
     Active Substance: ADALIMUMAB
     Dosage: CITRATE FREE
     Route: 058
     Dates: start: 20210927
  3. PLAVIX [Suspect]
     Active Substance: CLOPIDOGREL BISULFATE
     Indication: Microvascular coronary artery disease
     Route: 065
     Dates: end: 2021
  4. PLAVIX [Suspect]
     Active Substance: CLOPIDOGREL BISULFATE
     Route: 065
     Dates: start: 2021
  5. PFIZER-BIONTECH COVID-19 VACCINE [Concomitant]
     Active Substance: TOZINAMERAN
     Indication: COVID-19 immunisation
     Route: 030
     Dates: start: 20210306, end: 20210306
  6. PFIZER-BIONTECH COVID-19 VACCINE [Concomitant]
     Active Substance: TOZINAMERAN
     Route: 030
     Dates: start: 20210327, end: 20210327

REACTIONS (10)
  - Pneumothorax [Recovering/Resolving]
  - Internal haemorrhage [Recovered/Resolved]
  - Full blood count abnormal [Unknown]
  - Acute respiratory failure [Recovering/Resolving]
  - Post procedural complication [Unknown]
  - Renal failure [Recovered/Resolved]
  - Diabetes mellitus [Recovering/Resolving]
  - Pneumonia [Recovering/Resolving]
  - Oxygen saturation decreased [Recovering/Resolving]
  - Rales [Recovering/Resolving]

NARRATIVE: CASE EVENT DATE: 20190101
